FAERS Safety Report 4375783-X (Version None)
Quarter: 2004Q2

REPORT INFORMATION
  Report Type: 
  Country: None (occurrence: None)
  Receive Date: 20040609
  Receipt Date: 20040609
  Transmission Date: 20050107
  Serious: Yes (Hospitalization)
  Sender: FDA-Public Use
  Company Number: None

PATIENT
  Sex: Female

DRUGS (1)
  1. BENICAR [Suspect]

REACTIONS (9)
  - DIZZINESS [None]
  - HYPERHIDROSIS [None]
  - HYPOAESTHESIA ORAL [None]
  - HYPOTENSION [None]
  - LOSS OF CONSCIOUSNESS [None]
  - NAUSEA [None]
  - PYREXIA [None]
  - SENSATION OF FOREIGN BODY [None]
  - VIRAL INFECTION [None]
